FAERS Safety Report 5901206-2 (Version None)
Quarter: 2008Q3

REPORT INFORMATION
  Report Type: 
  Country: None (occurrence: None)
  Receive Date: 20080929
  Receipt Date: 20080826
  Transmission Date: 20090109
  Serious: No
  Sender: FDA-Public Use
  Company Number: US-BRISTOL-MYERS SQUIBB COMPANY-14215883

PATIENT
  Age: 45 Year
  Sex: Female

DRUGS (8)
  1. ORENCIA [Suspect]
     Indication: RHEUMATOID ARTHRITIS
     Dosage: LAST INFUSION 9-MAY-2008
     Route: 042
     Dates: start: 20061210, end: 20080516
  2. PREDNISONE [Concomitant]
  3. IBUPROFEN [Concomitant]
  4. CYMBALTA [Concomitant]
     Indication: DEPRESSION
     Dates: start: 20070801
  5. BONIVA [Concomitant]
  6. NEURONTIN [Concomitant]
     Indication: DEPRESSION
     Dates: start: 20070801
  7. VALTREX [Concomitant]
  8. OXYCONTIN [Concomitant]

REACTIONS (3)
  - MALAISE [None]
  - OEDEMA PERIPHERAL [None]
  - SUNBURN [None]
